FAERS Safety Report 10465638 (Version 2)
Quarter: 2014Q4

REPORT INFORMATION
  Report Type: Report from Study
  Country: JP (occurrence: JP)
  Receive Date: 20140919
  Receipt Date: 20141106
  Transmission Date: 20150528
  Serious: Yes (Other)
  Sender: FDA-Public Use
  Company Number: JP-MERCK-1409JPN008236

PATIENT
  Age: 52 Year
  Sex: Male
  Weight: 72 kg

DRUGS (7)
  1. PEGINTRON [Suspect]
     Active Substance: PEGINTERFERON ALFA-2B
     Indication: CHRONIC HEPATITIS C
     Dosage: 1.5 MICROGRAM PER KILOGRAM, QW
     Route: 058
     Dates: start: 20140606, end: 20140725
  2. RIBAVIRIN. [Suspect]
     Active Substance: RIBAVIRIN
     Indication: CHRONIC HEPATITIS C
     Dosage: 800 MG, A DAY
     Route: 048
     Dates: start: 20140606, end: 20140807
  3. SIMEPREVIR [Suspect]
     Active Substance: SIMEPREVIR
     Indication: CHRONIC HEPATITIS C
     Dosage: 100 MG, ONCE A DAY
     Route: 048
     Dates: start: 20140606, end: 20140807
  4. FAMOSTAGINE D [Concomitant]
     Active Substance: FAMOTIDINE
     Dosage: 40 MG, QD
  5. TEPRENONE [Concomitant]
     Active Substance: TEPRENONE
     Dosage: 1.5 G, 1 IN 1 DAY
     Route: 048
  6. ALLEGRA [Concomitant]
     Active Substance: FEXOFENADINE HYDROCHLORIDE
     Dosage: 120 MG, 1 IN 1 DAY
     Route: 048
     Dates: start: 20140606
  7. MARZULENE-S [Concomitant]
     Active Substance: SODIUM GUALENATE
     Dosage: 2 G, 1 IN 1 DAY
     Route: 048

REACTIONS (3)
  - Pyrexia [Recovering/Resolving]
  - Jaundice [Recovering/Resolving]
  - Hyperuricaemia [Recovered/Resolved]

NARRATIVE: CASE EVENT DATE: 20140606
